FAERS Safety Report 7508705-0 (Version None)
Quarter: 2011Q2

REPORT INFORMATION
  Report Type: 
  Country: None (occurrence: None)
  Receive Date: 20110527
  Receipt Date: 20100806
  Transmission Date: 20111010
  Serious: No
  Sender: FDA-Public Use
  Company Number: A0874429A

PATIENT
  Sex: Female

DRUGS (4)
  1. THYROID TAB [Concomitant]
  2. MECLIZINE [Concomitant]
  3. VENTOLIN [Suspect]
     Indication: ASTHMA
     Dosage: 1PUFF SINGLE DOSE
     Route: 055
     Dates: start: 20080101
  4. UNIVASC [Concomitant]

REACTIONS (3)
  - HYPERHIDROSIS [None]
  - PALPITATIONS [None]
  - TREMOR [None]
